FAERS Safety Report 8553634-7 (Version None)
Quarter: 2012Q2

REPORT INFORMATION
  Report Type: 
  Country: None (occurrence: None)
  Receive Date: 20120417
  Receipt Date: 20111117
  Transmission Date: 20120825
  Serious: Yes (Other)
  Sender: FDA-Public Use
  Company Number: 11-749

PATIENT
  Age: 52 Year
  Sex: Male
  Weight: 74.83 kg

DRUGS (2)
  1. RANITIDINE [Concomitant]
  2. NAPROXEN SODIUM [Suspect]
     Indication: BACK PAIN
     Dosage: 2DF;QAM; 1DF;QPM / ORAL
     Route: 048
     Dates: start: 20111105, end: 20111112

REACTIONS (6)
  - OPIATES POSITIVE [None]
  - IRRITABILITY [None]
  - ABDOMINAL DISCOMFORT [None]
  - NAUSEA [None]
  - HAEMATEMESIS [None]
  - DRUG SCREEN POSITIVE [None]
